FAERS Safety Report 12631302 (Version 2)
Quarter: 2016Q3

REPORT INFORMATION
  Report Type: Spontaneous
  Country: US (occurrence: US)
  Receive Date: 20160808
  Receipt Date: 20160808
  Transmission Date: 20161109
  Serious: No
  Sender: FDA-Public Use
  Company Number: US-BEH-2015053216

PATIENT
  Sex: Female
  Weight: 70.9 kg

DRUGS (25)
  1. LIPITOR [Concomitant]
     Active Substance: ATORVASTATIN CALCIUM
  2. PROBIOTIC [Concomitant]
     Active Substance: PROBIOTICS NOS
  3. ASMANEX [Concomitant]
     Active Substance: MOMETASONE FUROATE
  4. MULTIVITAMIN [Concomitant]
     Active Substance: VITAMINS
  5. VITAMIN B12 [Concomitant]
     Active Substance: CYANOCOBALAMIN
  6. DIPHENHYDRAMINE. [Concomitant]
     Active Substance: DIPHENHYDRAMINE
  7. LIDOCAINE. [Concomitant]
     Active Substance: LIDOCAINE
  8. EPIPEN [Concomitant]
     Active Substance: EPINEPHRINE
     Indication: ANAPHYLACTIC REACTION
  9. XANAX [Concomitant]
     Active Substance: ALPRAZOLAM
  10. HIZENTRA [Suspect]
     Active Substance: HUMAN IMMUNOGLOBULIN G
     Route: 058
  11. PROTONIX [Concomitant]
     Active Substance: PANTOPRAZOLE SODIUM
  12. SYNTHROID [Concomitant]
     Active Substance: LEVOTHYROXINE SODIUM
  13. ATORVASTATIN [Concomitant]
     Active Substance: ATORVASTATIN
  14. KLOR-CON [Concomitant]
     Active Substance: POTASSIUM CHLORIDE
  15. HIZENTRA [Suspect]
     Active Substance: HUMAN IMMUNOGLOBULIN G
     Indication: HYPER IGM SYNDROME
     Route: 058
  16. ACETAMINOPHEN. [Concomitant]
     Active Substance: ACETAMINOPHEN
  17. COZAAR [Concomitant]
     Active Substance: LOSARTAN POTASSIUM
  18. SINGULAIR [Concomitant]
     Active Substance: MONTELUKAST SODIUM
  19. XOPENEX [Concomitant]
     Active Substance: LEVALBUTEROL HYDROCHLORIDE
  20. METAMUCIL [Concomitant]
     Active Substance: PLANTAGO SEED
  21. CALCIUM [Concomitant]
     Active Substance: CALCIUM
  22. HIZENTRA [Suspect]
     Active Substance: HUMAN IMMUNOGLOBULIN G
     Route: 058
  23. RESTASIS [Concomitant]
     Active Substance: CYCLOSPORINE
  24. PATANOL [Concomitant]
     Active Substance: OLOPATADINE HYDROCHLORIDE
  25. ZYRTEC [Concomitant]
     Active Substance: CETIRIZINE HYDROCHLORIDE

REACTIONS (2)
  - Infusion site nodule [Unknown]
  - Infusion site erythema [Unknown]
